FAERS Safety Report 7279659-X (Version None)
Quarter: 2011Q1

REPORT INFORMATION
  Report Type: 
  Country: None (occurrence: None)
  Receive Date: 20110203
  Receipt Date: 20110203
  Transmission Date: 20110831
  Serious: Yes (Hospitalization)
  Sender: FDA-Public Use
  Company Number: None

PATIENT
  Sex: Female
  Weight: 40 kg

DRUGS (2)
  1. INTUNIV [Suspect]
     Indication: OPPOSITIONAL DEFIANT DISORDER
     Dosage: 1 MG ONCE PO
     Route: 048
     Dates: start: 20110128
  2. INTUNIV [Suspect]
     Indication: ATTENTION DEFICIT/HYPERACTIVITY DISORDER
     Dosage: 1 MG ONCE PO
     Route: 048
     Dates: start: 20110128

REACTIONS (4)
  - FORMICATION [None]
  - PALPITATIONS [None]
  - HALLUCINATION, VISUAL [None]
  - HYPOAESTHESIA ORAL [None]
